FAERS Safety Report 11815987 (Version 10)
Quarter: 2016Q2

REPORT INFORMATION
  Report Type: Spontaneous
  Country: US (occurrence: US)
  Receive Date: 20151209
  Receipt Date: 20160506
  Transmission Date: 20160815
  Serious: Yes (Hospitalization)
  Sender: FDA-Public Use
  Company Number: US-ACTELION-A-US2015-128280

PATIENT
  Age: 60 Year
  Sex: Male

DRUGS (5)
  1. TREPROSTINIL DIOLAMIN [Suspect]
     Active Substance: TREPROSTINIL DIOLAMINE
     Indication: PULMONARY ARTERIAL HYPERTENSION
     Dosage: 3.125 MG, UNK
     Route: 065
     Dates: start: 2015
  2. CARDIZEM [Concomitant]
     Active Substance: DILTIAZEM HYDROCHLORIDE
  3. OPSUMIT [Suspect]
     Active Substance: MACITENTAN
     Indication: PULMONARY ARTERIAL HYPERTENSION
     Dosage: 10 MG, QD
     Route: 048
     Dates: start: 20140815
  4. COUMADIN [Concomitant]
     Active Substance: WARFARIN SODIUM
  5. REMODULIN [Concomitant]
     Active Substance: TREPROSTINIL
     Indication: PULMONARY ARTERIAL HYPERTENSION
     Dosage: UNK
     Dates: start: 20160419

REACTIONS (18)
  - Atrial fibrillation [Recovering/Resolving]
  - Oedema peripheral [Not Recovered/Not Resolved]
  - Nausea [Unknown]
  - No therapeutic response [Unknown]
  - Peripheral swelling [Unknown]
  - Vomiting [Unknown]
  - Decreased appetite [Unknown]
  - Pain [Unknown]
  - Diarrhoea [Unknown]
  - Urinary tract infection [Unknown]
  - Abdominal distension [Unknown]
  - Arthralgia [Unknown]
  - Heart rate increased [Recovering/Resolving]
  - Catheter site pain [Unknown]
  - Dehydration [Unknown]
  - Flatulence [Unknown]
  - Abdominal discomfort [Unknown]
  - Dyspnoea [Unknown]
